FAERS Safety Report 11794464 (Version 4)
Quarter: 2016Q2

REPORT INFORMATION
  Report Type: Report from Study
  Country: US (occurrence: US)
  Receive Date: 20151202
  Receipt Date: 20160602
  Transmission Date: 20160815
  Serious: Yes (Other)
  Sender: FDA-Public Use
  Company Number: US-AMGEN-USASL2015125112

PATIENT
  Age: 55 Year
  Sex: Male

DRUGS (5)
  1. ENBREL [Suspect]
     Active Substance: ETANERCEPT
     Indication: PSORIATIC ARTHROPATHY
     Dosage: 50 MG, QWK
     Route: 065
     Dates: start: 20150417
  2. LYRICA [Concomitant]
     Active Substance: PREGABALIN
     Dosage: UNK
  3. ENBREL [Suspect]
     Active Substance: ETANERCEPT
     Dosage: UNK
     Route: 065
  4. ENBREL [Suspect]
     Active Substance: ETANERCEPT
     Dosage: UNK, QWK
     Route: 065
  5. METHOTREXATE [Suspect]
     Active Substance: METHOTREXATE
     Indication: PRODUCT USED FOR UNKNOWN INDICATION
     Dosage: UNK
     Route: 065

REACTIONS (27)
  - Muscle disorder [Unknown]
  - Dysphonia [Unknown]
  - Device issue [Unknown]
  - Arthropathy [Unknown]
  - Muscle spasms [Unknown]
  - Hypoaesthesia [Unknown]
  - Gait disturbance [Unknown]
  - Memory impairment [Not Recovered/Not Resolved]
  - Musculoskeletal stiffness [Unknown]
  - Pain [Unknown]
  - Learning disability [Not Recovered/Not Resolved]
  - Limb discomfort [Not Recovered/Not Resolved]
  - Tourette^s disorder [Not Recovered/Not Resolved]
  - Arthritis [Unknown]
  - Arthralgia [Not Recovered/Not Resolved]
  - Underdose [Unknown]
  - Attention deficit/hyperactivity disorder [Not Recovered/Not Resolved]
  - Condition aggravated [Unknown]
  - Hyperaesthesia [Unknown]
  - Productive cough [Unknown]
  - Joint stiffness [Not Recovered/Not Resolved]
  - Myalgia [Unknown]
  - Discomfort [Unknown]
  - Fibromyalgia [Not Recovered/Not Resolved]
  - Nervous system disorder [Unknown]
  - Pain in extremity [Not Recovered/Not Resolved]
  - Skin plaque [Recovered/Resolved]

NARRATIVE: CASE EVENT DATE: 2015
